FAERS Safety Report 20291729 (Version 1)
Quarter: 2022Q1

REPORT INFORMATION
  Report Type: Spontaneous
  Country: US (occurrence: US)
  Receive Date: 20220104
  Receipt Date: 20220104
  Transmission Date: 20220423
  Serious: No
  Sender: FDA-Public Use
  Company Number: US-GALDERMA-US2021019202

PATIENT

DRUGS (3)
  1. PROACTIV MD ADAPALENE ACNE TREATMENT [Suspect]
     Active Substance: ADAPALENE
     Indication: Acne
     Dosage: 1 DOSAGE FORM
     Route: 061
     Dates: start: 202102, end: 202109
  2. PROACTIV MD DAILY OIL CONTROL SPF 30 [Suspect]
     Active Substance: AVOBENZONE\OCTISALATE\OCTOCRYLENE
     Indication: Acne
     Dosage: 1 DOSAGE FORM, CUTANEOUS SOLUTION
     Route: 061
     Dates: start: 202102, end: 202109
  3. COSMETICS [Concomitant]
     Active Substance: COSMETICS
     Indication: Sensitive skin
     Dosage: 1 DOSAGE FORM
     Route: 061
     Dates: start: 202102, end: 202109

REACTIONS (5)
  - Hypersensitivity [Recovering/Resolving]
  - Acne [Recovering/Resolving]
  - Dermatitis [Recovering/Resolving]
  - Skin burning sensation [Recovering/Resolving]
  - Erythema [Recovering/Resolving]

NARRATIVE: CASE EVENT DATE: 20210101
